FAERS Safety Report 4307697-5 (Version None)
Quarter: 2004Q1

REPORT INFORMATION
  Report Type: 
  Country: None (occurrence: None)
  Receive Date: 20040226
  Receipt Date: 20040213
  Transmission Date: 20041129
  Serious: Yes (Hospitalization, Other)
  Sender: FDA-Public Use
  Company Number: HQWYE998313FEB04

PATIENT
  Age: 57 Year
  Sex: Male

DRUGS (3)
  1. CORDARONE [Suspect]
     Indication: ATRIAL FIBRILLATION
     Dosage: 200 MG TABLET
     Route: 048
     Dates: start: 20030825, end: 20030830
  2. TIAPRIDAL (TIAPRIDE, ) [Suspect]
     Indication: DELIRIUM TREMENS
     Dosage: 100 MG TABLET
     Route: 048
     Dates: start: 20030825, end: 20030830
  3. DIURETICS (DIURETICS) [Concomitant]

REACTIONS (4)
  - ELECTROCARDIOGRAM QT PROLONGED [None]
  - HYPOKALAEMIA [None]
  - TORSADE DE POINTES [None]
  - VENTRICULAR FIBRILLATION [None]
